FAERS Safety Report 9580818 (Version 2)
Quarter: 2014Q1

REPORT INFORMATION
  Report Type: Spontaneous
  Country: GB (occurrence: GB)
  Receive Date: 20131002
  Receipt Date: 20140311
  Transmission Date: 20141002
  Serious: Yes (Death)
  Sender: FDA-Public Use
  Company Number: GB-PFIZER INC-2013280838

PATIENT
  Sex: Male

DRUGS (5)
  1. MORPHINE SULFATE [Suspect]
     Dosage: 30 MG, 2X/DAY
     Route: 065
  2. OLANZAPINE [Interacting]
     Dosage: UNK
     Route: 065
  3. AMITRIPTYLINE [Interacting]
     Dosage: 50 MG, 1X/DAY
     Route: 048
  4. DIAZEPAM [Interacting]
     Dosage: 5 MG, UNK
     Route: 065
  5. VENLAFAXINE [Concomitant]
     Dosage: UNK
     Route: 065

REACTIONS (3)
  - Drug interaction [Fatal]
  - Toxicity to various agents [Fatal]
  - Drug screen positive [Fatal]
